FAERS Safety Report 5690462-4 (Version None)
Quarter: 2008Q1

REPORT INFORMATION
  Report Type: 
  Country: None (occurrence: None)
  Receive Date: 20080331
  Receipt Date: 20080331
  Transmission Date: 20080703
  Serious: Yes (Hospitalization, Other)
  Sender: FDA-Public Use
  Company Number: None

PATIENT
  Age: 26 Year
  Sex: Male
  Weight: 67.1324 kg

DRUGS (1)
  1. SINGULAIR [Suspect]
     Indication: SINUSITIS
     Dosage: 5MG I THINK  1 TIME  PO
     Route: 048
     Dates: start: 20070401, end: 20070401

REACTIONS (5)
  - ANXIETY [None]
  - EUPHORIC MOOD [None]
  - HEADACHE [None]
  - HEART RATE INCREASED [None]
  - TUNNEL VISION [None]
